FAERS Safety Report 4751636-X (Version None)
Quarter: 2005Q3

REPORT INFORMATION
  Report Type: 
  Country: None (occurrence: None)
  Receive Date: 20050824
  Receipt Date: 20050816
  Transmission Date: 20060218
  Serious: Yes (Hospitalization, Other)
  Sender: FDA-Public Use
  Company Number: FR-JNJFOC-20050700013

PATIENT
  Sex: Male
  Weight: 75 kg

DRUGS (4)
  1. RISPERDAL CONSTA [Suspect]
     Route: 030
  2. ATHYMIL [Concomitant]
  3. LORAZEPAM [Concomitant]
  4. STILNOX [Concomitant]
     Indication: SLEEP DISORDER
     Dosage: DOSE = TABLET

REACTIONS (7)
  - BLOOD CREATINE PHOSPHOKINASE INCREASED [None]
  - CATATONIA [None]
  - EXTRAPYRAMIDAL DISORDER [None]
  - HYPERHIDROSIS [None]
  - HYPERTENSION [None]
  - PYREXIA [None]
  - SINUS TACHYCARDIA [None]
